FAERS Safety Report 11917703 (Version 1)
Quarter: 2016Q1

REPORT INFORMATION
  Report Type: Spontaneous
  Country: GB (occurrence: GB)
  Receive Date: 20160114
  Receipt Date: 20160114
  Transmission Date: 20160526
  Serious: Yes (Other)
  Sender: FDA-Public Use
  Company Number: GB-ASTRAZENECA-2016SE01754

PATIENT
  Age: 63 Year
  Sex: Male
  Weight: 97 kg

DRUGS (5)
  1. DAPAGLIFLOZIN [Suspect]
     Active Substance: DAPAGLIFLOZIN
     Route: 048
     Dates: start: 20151201
  2. SITAGLIPTIN [Concomitant]
     Active Substance: SITAGLIPTIN
     Dates: start: 20150824, end: 20151103
  3. OMEPRAZOLE. [Concomitant]
     Active Substance: OMEPRAZOLE
     Indication: DYSPEPSIA
     Dosage: ONE OR TWO TABLET TO BE TAKEN DAILY
     Dates: start: 20150824
  4. SILDENAFIL. [Concomitant]
     Active Substance: SILDENAFIL
     Dosage: USE AS DIRECTED
     Dates: start: 20150824
  5. METFORMIN [Concomitant]
     Active Substance: METFORMIN HYDROCHLORIDE
     Dates: start: 20150824

REACTIONS (1)
  - Dizziness [Recovered/Resolved]

NARRATIVE: CASE EVENT DATE: 20151231
